FAERS Safety Report 15701503 (Version 1)
Quarter: 2018Q4

REPORT INFORMATION
  Report Type: Spontaneous
  Country: FR (occurrence: FR)
  Receive Date: 20181207
  Receipt Date: 20181207
  Transmission Date: 20190205
  Serious: Yes (Other)
  Sender: FDA-Public Use
  Company Number: FR-BAXTER-2018BAX029496

PATIENT
  Age: 78 Year
  Sex: Male

DRUGS (2)
  1. PHOXILIUM 1,2 MMOL/L PHOSPHATE, SOLUTION POUR H?MODIALYSE ET H?MOFILTR [Suspect]
     Active Substance: CALCIUM CL\MAGNESIUM CL\POTASSIUM CL\SODIUM BICAR\SODIUM CL\SODIUM PHOSPHATE,DIB
     Indication: CONTINUOUS HAEMODIAFILTRATION
     Route: 010
     Dates: start: 20181127, end: 20181128
  2. LOVENOX [Suspect]
     Active Substance: ENOXAPARIN SODIUM
     Indication: ANTICOAGULANT THERAPY
     Dosage: 2000UI/4H IN BOLUS?VIA RIGHT JUGULAR CATHETER
     Route: 040
     Dates: start: 20181127, end: 20181128

REACTIONS (3)
  - Haemorrhage [Unknown]
  - Device occlusion [Unknown]
  - Device issue [Unknown]

NARRATIVE: CASE EVENT DATE: 20181128
